FAERS Safety Report 10666698 (Version 1)
Quarter: 2014Q4

REPORT INFORMATION
  Report Type: Spontaneous
  Country: US (occurrence: US)
  Receive Date: 20141222
  Receipt Date: 20141222
  Transmission Date: 20150529
  Serious: Yes (Other)
  Sender: FDA-Public Use
  Company Number: US-BEH-2014047195

PATIENT
  Sex: Female
  Weight: 96 kg

DRUGS (26)
  1. LAMICTAL [Concomitant]
     Active Substance: LAMOTRIGINE
  2. HEPARIN [Concomitant]
     Active Substance: HEPARIN SODIUM
  3. EPIPEN [Concomitant]
     Active Substance: EPINEPHRINE
  4. LISINOPRIL. [Concomitant]
     Active Substance: LISINOPRIL
  5. LEVEMIR [Concomitant]
     Active Substance: INSULIN DETEMIR
  6. AMBIEN [Concomitant]
     Active Substance: ZOLPIDEM TARTRATE
  7. CREON [Concomitant]
     Active Substance: PANCRELIPASE AMYLASE\PANCRELIPASE LIPASE\PANCRELIPASE PROTEASE
  8. ASTELIN [Concomitant]
     Active Substance: AZELASTINE HYDROCHLORIDE
  9. TIZANIDINE (TIZANIDINE) [Concomitant]
     Active Substance: TIZANIDINE
  10. DIPHENHYDRAMINE [Concomitant]
     Active Substance: DIPHENHYDRAMINE
  11. NASACORT [Concomitant]
     Active Substance: TRIAMCINOLONE ACETONIDE
  12. HUMALOG [Concomitant]
     Active Substance: INSULIN LISPRO
  13. LYRICA [Concomitant]
     Active Substance: PREGABALIN
  14. METFORMIN [Concomitant]
     Active Substance: METFORMIN HYDROCHLORIDE
  15. SINGULAIR [Concomitant]
     Active Substance: MONTELUKAST SODIUM
  16. CELEBREX [Concomitant]
     Active Substance: CELECOXIB
  17. PRIVIGEN [Suspect]
     Active Substance: HUMAN IMMUNOGLOBULIN G
     Indication: IMMUNODEFICIENCY COMMON VARIABLE
     Route: 042
  18. PROZAC [Concomitant]
     Active Substance: FLUOXETINE HYDROCHLORIDE
  19. QVAR [Concomitant]
     Active Substance: BECLOMETHASONE DIPROPIONATE
  20. SODIUM CHLORIDE. [Concomitant]
     Active Substance: SODIUM CHLORIDE
  21. XANAX [Concomitant]
     Active Substance: ALPRAZOLAM
  22. LOSARTAN [Concomitant]
     Active Substance: LOSARTAN
  23. SIMVASTATIN. [Concomitant]
     Active Substance: SIMVASTATIN
  24. RYTHMOL [Concomitant]
     Active Substance: PROPAFENONE HYDROCHLORIDE
  25. NASONEX [Concomitant]
     Active Substance: MOMETASONE FUROATE
  26. AVONEX [Concomitant]
     Active Substance: INTERFERON BETA-1A

REACTIONS (1)
  - Respiratory tract infection [Unknown]
